FAERS Safety Report 6258304-6 (Version None)
Quarter: 2009Q3

REPORT INFORMATION
  Report Type: 
  Country: None (occurrence: None)
  Receive Date: 20090701
  Receipt Date: 20090408
  Transmission Date: 20100115
  Serious: Yes (Other)
  Sender: FDA-Public Use
  Company Number: 458014

PATIENT
  Sex: Female

DRUGS (2)
  1. KLONOPIN [Suspect]
     Indication: DRUG USE FOR UNKNOWN INDICATION
     Dosage: 1 MG E DAILY
     Dates: start: 19880101
  2. PRILOSEC [Concomitant]

REACTIONS (7)
  - ANXIETY [None]
  - CONVULSION [None]
  - DEPRESSION [None]
  - PANIC ATTACK [None]
  - SLEEP DISORDER [None]
  - TREMOR [None]
  - WITHDRAWAL SYNDROME [None]
